FAERS Safety Report 12773025 (Version 1)
Quarter: 2016Q3

REPORT INFORMATION
  Report Type: Spontaneous
  Country: US (occurrence: US)
  Receive Date: 20160922
  Receipt Date: 20160922
  Transmission Date: 20161109
  Serious: No
  Sender: FDA-Public Use
  Company Number: US-BION-20160028

PATIENT

DRUGS (1)
  1. ZYRTEC [Suspect]
     Active Substance: CETIRIZINE HYDROCHLORIDE
     Dosage: I HAVE TAKEN ZYRTEC GELS FOR ABOUT 5-6 TIMES NOW
     Route: 048

REACTIONS (1)
  - Somnolence [Unknown]
